FAERS Safety Report 18302366 (Version 5)
Quarter: 2022Q4

REPORT INFORMATION
  Report Type: Report from Study
  Country: US (occurrence: US)
  Receive Date: 20200923
  Receipt Date: 20221109
  Transmission Date: 20230113
  Serious: Yes (Hospitalization, Other)
  Sender: FDA-Public Use
  Company Number: US-SHIRE-US202024659

PATIENT
  Sex: Male
  Weight: 88 kg

DRUGS (39)
  1. TEDUGLUTIDE [Suspect]
     Active Substance: TEDUGLUTIDE
     Indication: Short-bowel syndrome
     Dosage: 3.8 MILLIGRAM, QD
     Route: 058
  2. TEDUGLUTIDE [Suspect]
     Active Substance: TEDUGLUTIDE
     Indication: Short-bowel syndrome
     Dosage: 3.8 MILLIGRAM, QD
     Route: 058
  3. TEDUGLUTIDE [Suspect]
     Active Substance: TEDUGLUTIDE
     Indication: Short-bowel syndrome
     Dosage: 3.8 MILLIGRAM, QD
     Route: 058
  4. TEDUGLUTIDE [Suspect]
     Active Substance: TEDUGLUTIDE
     Indication: Short-bowel syndrome
     Dosage: 3.8 MILLIGRAM, QD
     Route: 058
  5. TEDUGLUTIDE [Suspect]
     Active Substance: TEDUGLUTIDE
     Dosage: UNK
     Route: 058
     Dates: start: 20160910
  6. TEDUGLUTIDE [Suspect]
     Active Substance: TEDUGLUTIDE
     Dosage: UNK
     Route: 058
     Dates: start: 20160910
  7. TEDUGLUTIDE [Suspect]
     Active Substance: TEDUGLUTIDE
     Dosage: UNK
     Route: 058
     Dates: start: 20160910
  8. TEDUGLUTIDE [Suspect]
     Active Substance: TEDUGLUTIDE
     Dosage: UNK
     Route: 058
     Dates: start: 20160910
  9. TEDUGLUTIDE [Suspect]
     Active Substance: TEDUGLUTIDE
     Dosage: UNK
     Route: 050
     Dates: start: 20160910
  10. TEDUGLUTIDE [Suspect]
     Active Substance: TEDUGLUTIDE
     Dosage: UNK
     Route: 050
     Dates: start: 20160910
  11. TEDUGLUTIDE [Suspect]
     Active Substance: TEDUGLUTIDE
     Dosage: UNK
     Route: 050
     Dates: start: 20160910
  12. TEDUGLUTIDE [Suspect]
     Active Substance: TEDUGLUTIDE
     Dosage: UNK
     Route: 050
     Dates: start: 20160910
  13. TEDUGLUTIDE [Suspect]
     Active Substance: TEDUGLUTIDE
     Dosage: 3.8 MILLIGRAM, QD
     Route: 058
  14. TEDUGLUTIDE [Suspect]
     Active Substance: TEDUGLUTIDE
     Dosage: 3.8 MILLIGRAM, QD
     Route: 058
  15. TEDUGLUTIDE [Suspect]
     Active Substance: TEDUGLUTIDE
     Dosage: 3.8 MILLIGRAM, QD
     Route: 058
  16. TEDUGLUTIDE [Suspect]
     Active Substance: TEDUGLUTIDE
     Dosage: 3.8 MILLIGRAM, QD
     Route: 058
  17. COLESTIPOL HYDROCHLORIDE [Concomitant]
     Active Substance: COLESTIPOL HYDROCHLORIDE
     Dosage: 1 GRAM
     Route: 048
  18. LUNESTA [Concomitant]
     Active Substance: ESZOPICLONE
     Dosage: 3 MILLIGRAM
     Route: 048
  19. MELATONIN [Concomitant]
     Active Substance: MELATONIN
     Dosage: 100% POWDER
     Route: 065
  20. FISH OIL [Concomitant]
     Active Substance: FISH OIL
     Dosage: 100-150 MILLIGRAM
     Route: 048
  21. VITAMIN C [Concomitant]
     Active Substance: ASCORBIC ACID
     Dosage: 1000 MILLIGRAM
     Route: 048
  22. VITAMIN D2 [Concomitant]
     Active Substance: ERGOCALCIFEROL
     Dosage: 1250 MICROGRAM
     Route: 048
  23. BIOTIN [Concomitant]
     Active Substance: BIOTIN
     Dosage: 100% POWDER
     Route: 065
  24. TETRAHYDROZOLINE HYDROCHLORIDE [Concomitant]
     Active Substance: TETRAHYDROZOLINE HYDROCHLORIDE
     Dosage: 0.05% DROPS
     Route: 065
  25. TYLENOL [Concomitant]
     Active Substance: ACETAMINOPHEN
     Dosage: 325 MILLIGRAM
     Route: 048
  26. IBUPROFEN [Concomitant]
     Active Substance: IBUPROFEN
     Dosage: 100% POWDER
     Route: 065
  27. POTASSIUM ACETATE [Concomitant]
     Active Substance: POTASSIUM ACETATE
     Dosage: 2 MEQ/ML VIAL
     Route: 065
  28. MOXIFLOXACIN [Concomitant]
     Active Substance: MOXIFLOXACIN
     Route: 065
  29. OXYCODONE HYDROCHLORIDE [Concomitant]
     Active Substance: OXYCODONE HYDROCHLORIDE
     Dosage: 10 MILLIGRAM
     Route: 048
  30. ERGOCALCIFEROL [Concomitant]
     Active Substance: ERGOCALCIFEROL
     Dosage: 62.5 MICROGRAM
     Route: 048
  31. ATROPINE SULFATE [Concomitant]
     Active Substance: ATROPINE SULFATE
     Route: 065
  32. TAMSULOSIN HYDROCHLORIDE [Concomitant]
     Active Substance: TAMSULOSIN HYDROCHLORIDE
     Dosage: 0.4 MILLIGRAM
     Route: 048
  33. ROSUVASTATIN CALCIUM [Concomitant]
     Active Substance: ROSUVASTATIN CALCIUM
     Dosage: 10 MILLIGRAM
     Route: 048
  34. PROMETHAZINE HYDROCHLORIDE [Concomitant]
     Active Substance: PROMETHAZINE HYDROCHLORIDE
     Dosage: 12.5 MILLIGRAM
     Route: 048
  35. CYCLOBENZAPRINE HYDROCHLORIDE [Concomitant]
     Active Substance: CYCLOBENZAPRINE HYDROCHLORIDE
     Route: 065
  36. ESZOPICLONE [Concomitant]
     Active Substance: ESZOPICLONE
     Dosage: 1 MILLIGRAM
     Route: 048
  37. LOPERAMIDE HYDROCHLORIDE [Concomitant]
     Active Substance: LOPERAMIDE HYDROCHLORIDE
     Dosage: 1MG/7.5ML LIQUID
     Route: 065
  38. HYDROXYCHLOROQUINE SULFATE [Concomitant]
     Active Substance: HYDROXYCHLOROQUINE SULFATE
     Route: 065
  39. DIPHENOXYLATE HYDROCHLORIDE AND ATROPINE SULFATE [Concomitant]
     Active Substance: ATROPINE SULFATE\DIPHENOXYLATE HYDROCHLORIDE

REACTIONS (7)
  - Joint injury [Recovering/Resolving]
  - Rheumatoid arthritis [Unknown]
  - Diarrhoea [Not Recovered/Not Resolved]
  - Laboratory test abnormal [Unknown]
  - Pruritus [Unknown]
  - Skin induration [Unknown]
  - Product dose omission issue [Unknown]
